FAERS Safety Report 4717581-0 (Version None)
Quarter: 2005Q3

REPORT INFORMATION
  Report Type: 
  Country: None (occurrence: None)
  Receive Date: 20050712
  Receipt Date: 20050511
  Transmission Date: 20060218
  Serious: No
  Sender: FDA-Public Use
  Company Number: 2005S1000113

PATIENT
  Sex: Male

DRUGS (1)
  1. CUBICIN [Suspect]
     Dosage: 6 MG/KG;Q24H;IV
     Route: 042
     Dates: end: 20040201

REACTIONS (1)
  - BLOOD CREATINE PHOSPHOKINASE INCREASED [None]
